FAERS Safety Report 16201811 (Version 1)
Quarter: 2019Q2

REPORT INFORMATION
  Report Type: Spontaneous
  Country: IN (occurrence: IN)
  Receive Date: 20190416
  Receipt Date: 20190416
  Transmission Date: 20190711
  Serious: Yes (Life-Threatening, Hospitalization, Other)
  Sender: FDA-Public Use
  Company Number: IN-MACLEODS PHARMACEUTICALS US LTD-MAC2019020870

PATIENT

DRUGS (21)
  1. SODIUM VALPROATE [Suspect]
     Active Substance: VALPROATE SODIUM
     Indication: DELUSION
  2. SODIUM VALPROATE [Suspect]
     Active Substance: VALPROATE SODIUM
     Indication: HALLUCINATION, AUDITORY
  3. TOPIRAMATE. [Suspect]
     Active Substance: TOPIRAMATE
     Indication: PERSONALITY CHANGE
     Dosage: 50 MILLIGRAM, BID, EVERY 12 HOURS
     Route: 048
  4. TOPIRAMATE. [Suspect]
     Active Substance: TOPIRAMATE
     Indication: HALLUCINATION, AUDITORY
  5. OLANZAPINE 5MG TABLET [Suspect]
     Active Substance: OLANZAPINE
     Indication: PERSONALITY CHANGE
  6. SODIUM VALPROATE [Suspect]
     Active Substance: VALPROATE SODIUM
     Indication: PERSONALITY CHANGE
  7. SODIUM VALPROATE [Suspect]
     Active Substance: VALPROATE SODIUM
     Indication: PSYCHOMOTOR HYPERACTIVITY
  8. OLANZAPINE 5MG TABLET [Suspect]
     Active Substance: OLANZAPINE
     Indication: HALLUCINATION, AUDITORY
  9. SODIUM VALPROATE [Suspect]
     Active Substance: VALPROATE SODIUM
     Indication: JUDGEMENT IMPAIRED
     Dosage: 500 MILLIGRAM, TID, EVERY EIGHT HOURS
     Route: 048
  10. TOPIRAMATE. [Suspect]
     Active Substance: TOPIRAMATE
     Indication: JUDGEMENT IMPAIRED
  11. TOPIRAMATE. [Suspect]
     Active Substance: TOPIRAMATE
     Indication: PSYCHOMOTOR HYPERACTIVITY
  12. TOPIRAMATE. [Suspect]
     Active Substance: TOPIRAMATE
     Indication: DELUSION
  13. TOPIRAMATE. [Suspect]
     Active Substance: TOPIRAMATE
     Indication: LOGORRHOEA
  14. SODIUM VALPROATE [Suspect]
     Active Substance: VALPROATE SODIUM
     Indication: LOGORRHOEA
  15. SODIUM VALPROATE [Suspect]
     Active Substance: VALPROATE SODIUM
     Indication: AGGRESSION
  16. OLANZAPINE 5MG TABLET [Suspect]
     Active Substance: OLANZAPINE
     Indication: AGGRESSION
  17. OLANZAPINE 5MG TABLET [Suspect]
     Active Substance: OLANZAPINE
     Indication: DELUSION
  18. OLANZAPINE 5MG TABLET [Suspect]
     Active Substance: OLANZAPINE
     Indication: PSYCHOMOTOR HYPERACTIVITY
     Dosage: 5 MILLIGRAM, BID, EVERY 12 HOURS
     Route: 048
  19. OLANZAPINE 5MG TABLET [Suspect]
     Active Substance: OLANZAPINE
     Indication: JUDGEMENT IMPAIRED
  20. OLANZAPINE 5MG TABLET [Suspect]
     Active Substance: OLANZAPINE
     Indication: LOGORRHOEA
  21. TOPIRAMATE. [Suspect]
     Active Substance: TOPIRAMATE
     Indication: AGGRESSION

REACTIONS (1)
  - Stevens-Johnson syndrome [Unknown]
